FAERS Safety Report 23018951 (Version 1)
Quarter: 2023Q4

REPORT INFORMATION
  Report Type: Report from Study
  Country: CO (occurrence: CO)
  Receive Date: 20231003
  Receipt Date: 20231003
  Transmission Date: 20240110
  Serious: Yes (Death, Hospitalization, Other)
  Sender: FDA-Public Use
  Company Number: CO-ABBVIE-5431253

PATIENT
  Age: 76 Year
  Sex: Male

DRUGS (1)
  1. HUMIRA [Suspect]
     Active Substance: ADALIMUMAB
     Indication: Rheumatoid arthritis
     Dosage: FORM STRENGTH 40 MILLIGRAM
     Route: 058
     Dates: start: 20210522, end: 20221011

REACTIONS (16)
  - Respiratory arrest [Fatal]
  - Inflammation [Unknown]
  - Skin discolouration [Unknown]
  - Peripheral swelling [Unknown]
  - Gait inability [Unknown]
  - Pain in extremity [Unknown]
  - Suffocation feeling [Unknown]
  - Poor peripheral circulation [Unknown]
  - Anaemia [Unknown]
  - Hypophagia [Unknown]
  - Odynophagia [Unknown]
  - Swelling face [Unknown]
  - Wound infection [Unknown]
  - Burning sensation [Unknown]
  - Peripheral vein occlusion [Unknown]
  - Skin discolouration [Unknown]

NARRATIVE: CASE EVENT DATE: 20221201
